FAERS Safety Report 6856034-0 (Version None)
Quarter: 2010Q3

REPORT INFORMATION
  Report Type: 
  Country: None (occurrence: None)
  Receive Date: 20100719
  Receipt Date: 20100712
  Transmission Date: 20110219
  Serious: Yes (Other)
  Sender: FDA-Public Use
  Company Number: US-ASTRAZENECA-2010SE22381

PATIENT
  Age: 7400 Day
  Sex: Male
  Weight: 75.7 kg

DRUGS (2)
  1. SEROQUEL [Suspect]
     Indication: DEPRESSION
     Dosage: 25-50 MG DAILY
     Route: 048
     Dates: start: 20100402, end: 20100507
  2. PAXIL [Concomitant]

REACTIONS (1)
  - SOMNAMBULISM [None]
